FAERS Safety Report 9385101 (Version 1)
Quarter: 2013Q3

REPORT INFORMATION
  Report Type: Spontaneous
  Country: US (occurrence: US)
  Receive Date: 20130705
  Receipt Date: 20130705
  Transmission Date: 20140515
  Serious: Yes (Other)
  Sender: FDA-Public Use
  Company Number: PHEH2013US002101

PATIENT
  Age: 66 Year
  Sex: Female
  Weight: 53.61 kg

DRUGS (7)
  1. AFINITOR [Suspect]
     Indication: BREAST CANCER
     Dosage: 10 MG, QD
     Route: 048
  2. AFINITOR [Suspect]
     Dosage: 5 MG, QD
     Route: 048
  3. METRONIDAZOLE [Concomitant]
  4. EXEMESTANE [Concomitant]
  5. ISCADOR [Concomitant]
  6. DOXYCYCLINE [Concomitant]
  7. ATENOLOL [Concomitant]

REACTIONS (10)
  - Oral disorder [Recovering/Resolving]
  - Folliculitis [Recovering/Resolving]
  - Stomatitis [Recovering/Resolving]
  - Blood pressure increased [Recovering/Resolving]
  - Gingival pain [Recovering/Resolving]
  - Eating disorder [Unknown]
  - Gingival inflammation [Unknown]
  - Weight decreased [Unknown]
  - Nausea [Unknown]
  - Acne [Unknown]
